FAERS Safety Report 5800252-7 (Version None)
Quarter: 2008Q3

REPORT INFORMATION
  Report Type: 
  Country: None (occurrence: None)
  Receive Date: 20080703
  Receipt Date: 20080625
  Transmission Date: 20090109
  Serious: Yes (Other)
  Sender: FDA-Public Use
  Company Number: PHHY2008BR12489

PATIENT
  Sex: Male

DRUGS (3)
  1. VOLTAREN [Suspect]
     Indication: INFLUENZA
     Dosage: 75 MG, ONCE/SINGLE
     Route: 030
     Dates: start: 20080424
  2. DALSY [Concomitant]
     Indication: PYREXIA
     Dosage: 1 TABLET/DAY
     Route: 048
  3. DALSY [Concomitant]
     Indication: PAIN

REACTIONS (7)
  - CONVULSION [None]
  - ELECTROENCEPHALOGRAM ABNORMAL [None]
  - EPILEPSY [None]
  - HYPERHIDROSIS [None]
  - MUSCLE TWITCHING [None]
  - SPEECH DISORDER [None]
  - TIC [None]
